FAERS Safety Report 6310130-5 (Version None)
Quarter: 2009Q3

REPORT INFORMATION
  Report Type: 
  Country: None (occurrence: None)
  Receive Date: 20090814
  Receipt Date: 20090810
  Transmission Date: 20100115
  Serious: Yes (Disabling)
  Sender: FDA-Public Use
  Company Number: DE-BAYER-200928108GPV

PATIENT
  Age: 56 Year
  Sex: Female

DRUGS (3)
  1. BETAFERON [Suspect]
     Indication: DRUG USE FOR UNKNOWN INDICATION
     Dosage: RE-IMPORTED PRODUCT CC PHARMA
     Dates: start: 20090711, end: 20090720
  2. BETAFERON [Suspect]
     Dates: start: 20000101
  3. ENALAPRIL MALEATE [Concomitant]
     Indication: DRUG USE FOR UNKNOWN INDICATION

REACTIONS (3)
  - CHILLS [None]
  - MONOPLEGIA [None]
  - RESTLESSNESS [None]
